FAERS Safety Report 7290059-9 (Version None)
Quarter: 2011Q1

REPORT INFORMATION
  Report Type: 
  Country: None (occurrence: None)
  Receive Date: 20110214
  Receipt Date: 20110203
  Transmission Date: 20110831
  Serious: Yes (Death, Hospitalization, Other)
  Sender: FDA-Public Use
  Company Number: JP-JNJFOC-20101000492

PATIENT
  Sex: Female
  Weight: 61 kg

DRUGS (37)
  1. DOXORUBICIN HCL [Suspect]
     Dosage: CYCLE 8
     Route: 042
  2. DOXORUBICIN HCL [Suspect]
     Dosage: CYCLE 3
     Route: 042
  3. DECADRON [Concomitant]
     Route: 048
  4. DOXORUBICIN HCL [Suspect]
     Indication: OVARIAN CANCER RECURRENT
     Dosage: CYCLE 1
     Route: 042
  5. DOXORUBICIN HCL [Suspect]
     Dosage: CYCLE 10
     Route: 042
  6. PARIET [Concomitant]
     Indication: GASTRIC ULCER
     Route: 048
  7. SAXIZON [Concomitant]
     Route: 042
  8. DOXORUBICIN HCL [Suspect]
     Dosage: CYCLE 9
     Route: 042
  9. DOXORUBICIN HCL [Suspect]
     Dosage: CYCLE 2
     Route: 042
  10. CEFAMEZIN ALPHA [Concomitant]
     Indication: PYREXIA
     Route: 041
  11. LEUCON [Concomitant]
     Indication: OVARIAN CANCER RECURRENT
     Route: 048
  12. PRIMPERAN TAB [Concomitant]
     Indication: OVARIAN CANCER RECURRENT
     Route: 048
  13. HIRUDOID CREAM [Concomitant]
     Indication: PROPHYLAXIS
     Route: 061
  14. NICARPINE [Concomitant]
     Indication: BLOOD PRESSURE INCREASED
     Route: 042
  15. POLARAMINE [Concomitant]
     Route: 042
  16. DOXORUBICIN HCL [Suspect]
     Dosage: CYCLE 5
     Route: 042
  17. DOXORUBICIN HCL [Suspect]
     Dosage: CYCLE 4
     Route: 042
  18. JUZEN-TAIHO-TO [Concomitant]
     Indication: OVARIAN CANCER RECURRENT
     Route: 048
  19. AZUNOL [Concomitant]
     Indication: STOMATITIS
     Route: 049
  20. LOPEMIN [Concomitant]
     Indication: DIARRHOEA
     Route: 048
  21. CONCENTRATED HUMAN RED BLOOD CELLS [Concomitant]
     Indication: ANAEMIA
     Route: 041
  22. DECADRON [Concomitant]
     Indication: PROPHYLAXIS
     Route: 048
  23. KENALOG [Concomitant]
     Indication: STOMATITIS
     Route: 049
  24. LOXONIN [Concomitant]
     Indication: OVARIAN CANCER RECURRENT
     Route: 048
  25. VOLTAREN [Concomitant]
     Indication: PYREXIA
     Route: 054
  26. POLARAMINE [Concomitant]
     Indication: URTICARIA
     Route: 048
  27. ZYLORIC [Concomitant]
     Indication: STOMATITIS
     Route: 048
  28. NEUTROGIN [Concomitant]
     Indication: PRODUCT USED FOR UNKNOWN INDICATION
     Route: 042
  29. PRIMPERAN TAB [Concomitant]
     Indication: DIARRHOEA
     Route: 042
  30. SAXIZON [Concomitant]
     Indication: URTICARIA
     Route: 042
  31. DOXORUBICIN HCL [Suspect]
     Dosage: CYCLE 7
     Route: 042
  32. XYLOCAINE [Concomitant]
     Indication: STOMATITIS
     Route: 049
  33. VEEN-F [Concomitant]
     Indication: URTICARIA
     Route: 042
  34. DOXORUBICIN HCL [Suspect]
     Dosage: CYCLE 6
     Route: 042
  35. FERROUS CITRATE [Concomitant]
     Indication: OVARIAN CANCER RECURRENT
     Route: 048
  36. PYDOXAL [Concomitant]
     Indication: PROPHYLAXIS
     Route: 048
  37. POLARAMINE [Concomitant]
     Route: 042

REACTIONS (7)
  - PYREXIA [None]
  - NAUSEA [None]
  - URTICARIA [None]
  - ANAEMIA [None]
  - INFUSION RELATED REACTION [None]
  - CHILLS [None]
  - OVARIAN CANCER [None]
